FAERS Safety Report 14536543 (Version 1)
Quarter: 2018Q1

REPORT INFORMATION
  Report Type: Spontaneous
  Country: US (occurrence: US)
  Receive Date: 20180215
  Receipt Date: 20180215
  Transmission Date: 20180509
  Serious: Yes (Hospitalization)
  Sender: FDA-Public Use
  Company Number: None

PATIENT
  Age: 66 Year
  Sex: Male
  Weight: 77.1 kg

DRUGS (9)
  1. LIPITOR [Concomitant]
     Active Substance: ATORVASTATIN CALCIUM
  2. METOLAZONE. [Suspect]
     Active Substance: METOLAZONE
     Indication: HYPERTENSION
     Dosage: DATES OF USE - CHRONIC
     Route: 048
  3. BUMEX [Concomitant]
     Active Substance: BUMETANIDE
  4. LOPRESSOR [Concomitant]
     Active Substance: METOPROLOL TARTRATE
  5. AMLODIPINE [Concomitant]
     Active Substance: AMLODIPINE BESYLATE
  6. APIXIBAN [Concomitant]
     Active Substance: APIXABAN
  7. METOLAZONE. [Suspect]
     Active Substance: METOLAZONE
     Indication: CARDIAC FAILURE CONGESTIVE
     Dosage: DATES OF USE - CHRONIC
     Route: 048
  8. HUMULIN NOS [Concomitant]
     Active Substance: INSULIN HUMAN
  9. K-DUR [Concomitant]
     Active Substance: POTASSIUM CHLORIDE

REACTIONS (7)
  - Inappropriate antidiuretic hormone secretion [None]
  - Asthenia [None]
  - Fall [None]
  - Acute kidney injury [None]
  - Hyponatraemia [None]
  - Therapy cessation [None]
  - Hypophagia [None]

NARRATIVE: CASE EVENT DATE: 20170713
